FAERS Safety Report 18485143 (Version 2)
Quarter: 2020Q4

REPORT INFORMATION
  Report Type: Report from Study
  Country: IT (occurrence: IT)
  Receive Date: 20201110
  Receipt Date: 20201118
  Transmission Date: 20210114
  Serious: Yes (Death)
  Sender: FDA-Public Use
  Company Number: IT-PFIZER INC-2020437154

PATIENT

DRUGS (4)
  1. GALUNISERTIB [Suspect]
     Active Substance: GALUNISERTIB
     Dosage: 160 MG, 2X/DAY (CYCLIC)
     Route: 048
  2. GALUNISERTIB [Suspect]
     Active Substance: GALUNISERTIB
     Dosage: 300 MG, 2X/DAY (CYCLIC)
     Route: 048
  3. GEMCITABINE HYDROCHLORIDE. [Suspect]
     Active Substance: GEMCITABINE HYDROCHLORIDE
     Indication: PANCREATIC CARCINOMA
     Dosage: 1000 MG/M2, WEEKLY (INFUSION, OVER 30 MIN, FOR 7 WEEKS, FOLLOWED BY A WEEK OF REST FROM TREATMENT)
     Route: 042
  4. GALUNISERTIB [Suspect]
     Active Substance: GALUNISERTIB
     Indication: PANCREATIC CARCINOMA
     Dosage: 80 MG, 2X/DAY (CYCLIC)
     Route: 048

REACTIONS (1)
  - Pericardial effusion [Fatal]
